FAERS Safety Report 16919112 (Version 1)
Quarter: 2019Q4

REPORT INFORMATION
  Report Type: Spontaneous
  Country: US (occurrence: US)
  Receive Date: 20191015
  Receipt Date: 20191015
  Transmission Date: 20200122
  Serious: No
  Sender: FDA-Public Use
  Company Number: US-009507513-1909USA008596

PATIENT
  Sex: Female

DRUGS (1)
  1. NEXPLANON [Suspect]
     Active Substance: ETONOGESTREL
     Indication: CONTRACEPTION
     Dosage: 1 IMPLANT, UNKNOWN
     Route: 059

REACTIONS (5)
  - Limb discomfort [Not Recovered/Not Resolved]
  - Mass [Not Recovered/Not Resolved]
  - Pain [Unknown]
  - Device deployment issue [Unknown]
  - Hypoaesthesia [Unknown]
